FAERS Safety Report 9686350 (Version 2)
Quarter: 2014Q1

REPORT INFORMATION
  Report Type: Spontaneous
  Country: US (occurrence: US)
  Receive Date: 20131113
  Receipt Date: 20140123
  Transmission Date: 20141002
  Serious: Yes (Death, Hospitalization, Other)
  Sender: FDA-Public Use
  Company Number: US-B.I. PHARMACEUTICALS,INC./RIDGEFIELD-2013-BI-37338BP

PATIENT
  Age: 104 Year
  Sex: Male
  Weight: 77.11 kg

DRUGS (6)
  1. PRADAXA [Suspect]
     Indication: ANTICOAGULANT THERAPY
     Dosage: 150 MG
     Route: 048
     Dates: start: 20111018, end: 20111116
  2. METOPROLOL [Concomitant]
     Dates: start: 20110329, end: 201111
  3. SIMVASTATIN [Concomitant]
     Dates: start: 20110426, end: 201111
  4. FUROSEMIDE [Concomitant]
     Dates: start: 20110406, end: 201111
  5. ISOSORBIDE [Concomitant]
     Dates: start: 20110620, end: 201111
  6. BABY ASPIRIN [Concomitant]

REACTIONS (5)
  - Respiratory failure [Fatal]
  - Gastrointestinal haemorrhage [Unknown]
  - Epistaxis [Unknown]
  - Renal failure [Unknown]
  - Anaemia [Unknown]
